FAERS Safety Report 4273269-4 (Version None)
Quarter: 2004Q1

REPORT INFORMATION
  Report Type: 
  Country: None (occurrence: None)
  Receive Date: 20040116
  Receipt Date: 20010628
  Transmission Date: 20041129
  Serious: Yes (Other)
  Sender: FDA-Public Use
  Company Number: WAES 01063559

PATIENT
  Age: 73 Year
  Sex: Female
  Weight: 65 kg

DRUGS (2)
  1. SIMVASTATIN [Suspect]
     Indication: HYPERCHOLESTEROLAEMIA
     Route: 048
     Dates: start: 19980101, end: 19980101
  2. SIMVASTATIN [Suspect]
     Route: 048
     Dates: start: 20020101, end: 20020101

REACTIONS (2)
  - BREAST CANCER [None]
  - HYPOTRICHOSIS [None]
